FAERS Safety Report 8759062 (Version 4)
Quarter: 2012Q4

REPORT INFORMATION
  Report Type: 
  Country: US (occurrence: US)
  Receive Date: 20120829
  Receipt Date: 20121219
  Transmission Date: 20130627
  Serious: No
  Sender: FDA-Public Use
  Company Number: US-BIOGENIDEC-2012BI033539

PATIENT
  Sex: Female

DRUGS (2)
  1. AVONEX [Suspect]
     Indication: MULTIPLE SCLEROSIS
     Route: 030
  2. AVONEX [Suspect]
     Indication: MULTIPLE SCLEROSIS
     Route: 030
     Dates: start: 20121010

REACTIONS (17)
  - Injection site rash [Recovered/Resolved]
  - Migraine [Not Recovered/Not Resolved]
  - Amnesia [Unknown]
  - Shoulder operation [Unknown]
  - Cognitive disorder [Not Recovered/Not Resolved]
  - Rubber sensitivity [Not Recovered/Not Resolved]
  - Frustration [Not Recovered/Not Resolved]
  - Crying [Not Recovered/Not Resolved]
  - Coordination abnormal [Not Recovered/Not Resolved]
  - Weight decreased [Not Recovered/Not Resolved]
  - Lower extremity mass [Not Recovered/Not Resolved]
  - Carpal tunnel syndrome [Unknown]
  - Rash [Unknown]
  - Confusional state [Not Recovered/Not Resolved]
  - Nausea [Unknown]
  - Depression [Not Recovered/Not Resolved]
  - Anxiety [Not Recovered/Not Resolved]
